FAERS Safety Report 23682026 (Version 2)
Quarter: 2024Q1

REPORT INFORMATION
  Report Type: Spontaneous
  Country: IL (occurrence: IL)
  Receive Date: 20240328
  Receipt Date: 20240328
  Transmission Date: 20240409
  Serious: Yes (Hospitalization, Other)
  Sender: FDA-Public Use
  Company Number: IL-BAYER-2024A044126

PATIENT
  Age: 94 Year
  Sex: Female

DRUGS (1)
  1. XARELTO [Suspect]
     Active Substance: RIVAROXABAN
     Indication: Product used for unknown indication
     Route: 048

REACTIONS (17)
  - Depressed level of consciousness [Unknown]
  - Blood pressure decreased [Unknown]
  - Loss of consciousness [Recovered/Resolved]
  - Urogenital fistula [Unknown]
  - Urinary bladder haemorrhage [Unknown]
  - Bladder cancer [Unknown]
  - Fall [Unknown]
  - Pelvic bone injury [Unknown]
  - Hip fracture [Unknown]
  - Dysuria [Unknown]
  - Haematuria [Unknown]
  - Asthenia [Unknown]
  - Dizziness [Unknown]
  - Blood pressure increased [Unknown]
  - Abdominal pain lower [Unknown]
  - Pelvic mass [Unknown]
  - Bladder catheterisation [Unknown]

NARRATIVE: CASE EVENT DATE: 20240101
